FAERS Safety Report 5718297-4 (Version None)
Quarter: 2008Q2

REPORT INFORMATION
  Report Type: 
  Country: None (occurrence: None)
  Receive Date: 20080425
  Receipt Date: 20080211
  Transmission Date: 20081010
  Serious: No
  Sender: FDA-Public Use
  Company Number: US-ASTRAZENECA-2008UW02834

PATIENT
  Age: 52 Year
  Sex: Female

DRUGS (6)
  1. ZOMIG [Suspect]
     Indication: MIGRAINE
     Route: 048
     Dates: start: 19980101
  2. SYNTHROID [Concomitant]
  3. ZYRTEC [Concomitant]
  4. PREVACID [Concomitant]
  5. PAIN MEDICATION [Concomitant]
  6. XANAX [Concomitant]

REACTIONS (4)
  - DYSPHAGIA [None]
  - NERVOUSNESS [None]
  - STRESS [None]
  - THROAT TIGHTNESS [None]
